FAERS Safety Report 7043431-6 (Version None)
Quarter: 2010Q4

REPORT INFORMATION
  Report Type: 
  Country: None (occurrence: None)
  Receive Date: 20101013
  Receipt Date: 20091214
  Transmission Date: 20110411
  Serious: No
  Sender: FDA-Public Use
  Company Number: US-BAUSCH-2009BL006716

PATIENT
  Age: 71 Year
  Sex: Female

DRUGS (3)
  1. NEOMYCIN AND POLYMXIN B SULFATES AND HYDROCORTISONE [Suspect]
     Indication: EAR PAIN
     Route: 001
     Dates: start: 20091207, end: 20091214
  2. REQUIP [Concomitant]
     Indication: PARKINSON'S DISEASE
     Route: 048
  3. LEVOTHYROXINE [Concomitant]
     Indication: THYROID DISORDER
     Route: 048

REACTIONS (2)
  - APPLICATION SITE EXFOLIATION [None]
  - HYPOACUSIS [None]
